FAERS Safety Report 6404091-8 (Version None)
Quarter: 2009Q4

REPORT INFORMATION
  Report Type: 
  Country: None (occurrence: None)
  Receive Date: 20091016
  Receipt Date: 20091005
  Transmission Date: 20100525
  Serious: Yes (Hospitalization)
  Sender: FDA-Public Use
  Company Number: JP-PFIZER INC-2009283640

PATIENT
  Age: 61 Year

DRUGS (2)
  1. CELECOX [Suspect]
     Dosage: 200 MG, 1X/DAY
     Route: 048
     Dates: start: 20080712
  2. INDOMETACIN [Concomitant]

REACTIONS (2)
  - CELLULITIS [None]
  - NECROTISING FASCIITIS [None]
